FAERS Safety Report 10195970 (Version 1)
Quarter: 2014Q2

REPORT INFORMATION
  Report Type: Spontaneous
  Country: US (occurrence: None)
  Receive Date: 20140522
  Receipt Date: 20140522
  Transmission Date: 20141212
  Serious: Yes (Other)
  Sender: FDA-Public Use
  Company Number: UNT-2014-000212

PATIENT
  Age: 49 Year
  Sex: Female

DRUGS (4)
  1. REMODULIN (TREPROSTINIL SODIUM) INJECTION, 10MG/ML [Suspect]
     Indication: PULMONARY ARTERIAL HYPERTENSION
     Dosage: 0.177 UG/KG/MIN
     Route: 041
     Dates: start: 20040115
  2. COUMADIN (WARFARIN SODIUM) [Concomitant]
  3. LETAIRIS (AMBRISENTAN) [Concomitant]
  4. ADCIRCA (TADALAFIL) [Concomitant]

REACTIONS (1)
  - Diabetic nephropathy [None]
